FAERS Safety Report 4899854-4 (Version None)
Quarter: 2006Q1

REPORT INFORMATION
  Report Type: 
  Country: None (occurrence: None)
  Receive Date: 20060120
  Receipt Date: 20051110
  Transmission Date: 20060701
  Serious: Yes (Other)
  Sender: FDA-Public Use
  Company Number: 424364

PATIENT
  Age: 43 Year
  Sex: Male

DRUGS (2)
  1. TRETINOIN [Suspect]
     Indication: ACUTE PROMYELOCYTIC LEUKAEMIA
     Dosage: 45 MG/M2 DAILY
  2. IDARUBICIN HCL [Concomitant]

REACTIONS (1)
  - HEADACHE [None]
